FAERS Safety Report 5666223-9 (Version None)
Quarter: 2008Q1

REPORT INFORMATION
  Report Type: 
  Country: None (occurrence: None)
  Receive Date: 20080314
  Receipt Date: 20071206
  Transmission Date: 20080703
  Serious: No
  Sender: FDA-Public Use
  Company Number: US-ABBOTT-07P-163-0430177-00

PATIENT
  Sex: Female
  Weight: 72.64 kg

DRUGS (4)
  1. HUMIRA [Suspect]
     Indication: COLITIS ULCERATIVE
     Route: 058
     Dates: start: 20070801
  2. MERCAPTOPURINE [Concomitant]
     Indication: CROHN'S DISEASE
     Route: 048
  3. SPIRONOLACTONE [Concomitant]
     Indication: ACNE
     Route: 048
  4. MELOXICAM [Concomitant]
     Indication: PAIN
     Route: 048

REACTIONS (5)
  - DYSPNOEA [None]
  - INJECTION SITE BRUISING [None]
  - INJECTION SITE INDURATION [None]
  - INJECTION SITE PAIN [None]
  - PHARYNGOLARYNGEAL PAIN [None]
